FAERS Safety Report 18908044 (Version 1)
Quarter: 2021Q1

REPORT INFORMATION
  Report Type: Spontaneous
  Country: US (occurrence: US)
  Receive Date: 20210218
  Receipt Date: 20210218
  Transmission Date: 20210420
  Serious: Yes (Other)
  Sender: FDA-Public Use
  Company Number: US-NOVEN PHARMACEUTICALS, INC.-2020US009309

PATIENT
  Age: 10 Year
  Sex: Male
  Weight: 26.3 kg

DRUGS (2)
  1. FLUOXETINE [Concomitant]
     Active Substance: FLUOXETINE HYDROCHLORIDE
     Indication: PRODUCT USED FOR UNKNOWN INDICATION
     Dosage: UNK
  2. DAYTRANA [Suspect]
     Active Substance: METHYLPHENIDATE
     Indication: ATTENTION DEFICIT HYPERACTIVITY DISORDER
     Dosage: 10 MG, DAILY
     Route: 062
     Dates: start: 202009

REACTIONS (7)
  - Device issue [Unknown]
  - Application site irritation [Unknown]
  - Device difficult to use [Unknown]
  - Application site erythema [Recovering/Resolving]
  - Device breakage [Unknown]
  - Application site pain [Unknown]
  - Product administration error [Unknown]

NARRATIVE: CASE EVENT DATE: 20201112
